FAERS Safety Report 8077530-7 (Version None)
Quarter: 2012Q1

REPORT INFORMATION
  Report Type: 
  Country: None (occurrence: None)
  Receive Date: 20120126
  Receipt Date: 20120126
  Transmission Date: 20120608
  Serious: No
  Sender: FDA-Public Use
  Company Number: None

PATIENT
  Sex: Male

DRUGS (1)
  1. NEXAVAR [Suspect]
     Indication: NEOPLASM MALIGNANT
     Dosage: 200MG TWICE DAILY ORAL
     Route: 048

REACTIONS (1)
  - RASH GENERALISED [None]
